FAERS Safety Report 8461639-X (Version None)
Quarter: 2012Q2

REPORT INFORMATION
  Report Type: 
  Country: None (occurrence: None)
  Receive Date: 20120625
  Receipt Date: 20120620
  Transmission Date: 20120825
  Serious: Yes (Other)
  Sender: FDA-Public Use
  Company Number: PHEH2012US012254

PATIENT

DRUGS (1)
  1. AFINITOR [Suspect]

REACTIONS (1)
  - NERVOUS SYSTEM NEOPLASM [None]
